FAERS Safety Report 21638408 (Version 1)
Quarter: 2022Q4

REPORT INFORMATION
  Report Type: Spontaneous
  Country: CN (occurrence: CN)
  Receive Date: 20221124
  Receipt Date: 20221124
  Transmission Date: 20230112
  Serious: Yes (Other)
  Sender: FDA-Public Use
  Company Number: CN-PFIZER INC-PV202200109267

PATIENT
  Age: 9 Year
  Sex: Male
  Weight: 21 kg

DRUGS (4)
  1. METHOTREXATE SODIUM [Suspect]
     Active Substance: METHOTREXATE SODIUM
     Indication: Acute lymphocytic leukaemia
     Dosage: ALSO REPORTED AS PUMPING QD AT A RATE WAS 69ML/H 23GTT/MIN
     Dates: start: 20221102, end: 20221102
  2. METHOTREXATE SODIUM [Suspect]
     Active Substance: METHOTREXATE SODIUM
     Dosage: 12.5 MG, 1X/DAY
     Route: 037
     Dates: start: 20221102, end: 20221102
  3. CYTARABINE [Suspect]
     Active Substance: CYTARABINE
     Indication: Acute lymphocytic leukaemia
     Dosage: 30 MG, 1X/DAY
     Route: 037
     Dates: start: 20221102, end: 20221102
  4. SODIUM CHLORIDE [Concomitant]
     Active Substance: SODIUM CHLORIDE
     Indication: Vehicle solution use
     Dosage: PUMPING QD AT A RATE WAS 69ML/H 23GTT/MIN
     Dates: start: 20221102, end: 20221102

REACTIONS (3)
  - Hepatic function abnormal [Recovering/Resolving]
  - Liver injury [Recovering/Resolving]
  - Hepatic enzyme increased [Recovering/Resolving]

NARRATIVE: CASE EVENT DATE: 20221106
